FAERS Safety Report 11211420 (Version 1)
Quarter: 2015Q2

REPORT INFORMATION
  Report Type: Spontaneous
  Country: US (occurrence: None)
  Receive Date: 20150619
  Receipt Date: 20150619
  Transmission Date: 20150821
  Serious: Yes (Disabling, Other)
  Sender: FDA-Public Use
  Company Number: None

PATIENT
  Age: 61 Year
  Sex: Male
  Weight: 108.86 kg

DRUGS (18)
  1. SYSTANE ULTRA [Suspect]
     Active Substance: POLYETHYLENE GLYCOL 400\PROPYLENE GLYCOL
     Indication: BURNING SENSATION
     Dosage: 1-2 DROPPS INTO THE EYE
     Route: 047
     Dates: start: 20141130, end: 20150617
  2. FLEXERIL [Concomitant]
     Active Substance: CYCLOBENZAPRINE HYDROCHLORIDE
  3. SYSTANE ULTRA [Suspect]
     Active Substance: POLYETHYLENE GLYCOL 400\PROPYLENE GLYCOL
     Dosage: 1-2 DROPPS INTO THE EYE
     Route: 047
     Dates: start: 20141130, end: 20150617
  4. COREG [Concomitant]
     Active Substance: CARVEDILOL
  5. RANITIDINE [Concomitant]
     Active Substance: RANITIDINE\RANITIDINE HYDROCHLORIDE
  6. PRIVASTATIN [Concomitant]
  7. ASA [Concomitant]
     Active Substance: ASPIRIN
  8. VALACYCLOVIR [Concomitant]
     Active Substance: VALACYCLOVIR HYDROCHLORIDE
  9. AMLODIPINE [Concomitant]
     Active Substance: AMLODIPINE BESYLATE
  10. SUPER B COMPLEX [Concomitant]
     Active Substance: CYANOCOBALAMIN\DEXPANTHENOL\NIACINAMIDE\PYRIDOXINE HYDROCHLORIDE\RIBOFLAVIN 5^-PHOSPHATE SODIUM\THIAMINE HYDROCHLORIDE\VITAMIN B COMPLEX
  11. HYDROCODON [Concomitant]
     Active Substance: HYDROCODONE
  12. MECLIZINE [Concomitant]
     Active Substance: MECLIZINE\MECLIZINE HYDROCHLORIDE
  13. FIBER CAPSULE [Concomitant]
  14. COQ10 [Concomitant]
     Active Substance: UBIDECARENONE
  15. LISINOPRIL. [Concomitant]
     Active Substance: LISINOPRIL
  16. FLOMAX [Concomitant]
     Active Substance: TAMSULOSIN HYDROCHLORIDE
  17. PROTONIX [Concomitant]
     Active Substance: PANTOPRAZOLE SODIUM
  18. FISH OIL [Concomitant]
     Active Substance: FISH OIL

REACTIONS (2)
  - Retinal tear [None]
  - Vitreous floaters [None]

NARRATIVE: CASE EVENT DATE: 20150506
